FAERS Safety Report 7768283-8 (Version None)
Quarter: 2011Q3

REPORT INFORMATION
  Report Type: 
  Country: None (occurrence: None)
  Receive Date: 20110922
  Receipt Date: 20101206
  Transmission Date: 20111222
  Serious: No
  Sender: FDA-Public Use
  Company Number: US-ASTRAZENECA-2010SE57658

PATIENT
  Age: 53 Year
  Sex: Male
  Weight: 87.5 kg

DRUGS (4)
  1. SEROQUEL [Suspect]
     Route: 048
  2. PROZAC [Concomitant]
  3. PAIN MEDICATION [Concomitant]
  4. SEROQUEL [Suspect]
     Route: 048
     Dates: start: 20070101

REACTIONS (3)
  - INSOMNIA [None]
  - DRUG INEFFECTIVE [None]
  - WRONG TECHNIQUE IN DRUG USAGE PROCESS [None]
